FAERS Safety Report 25379039 (Version 1)
Quarter: 2025Q2

REPORT INFORMATION
  Report Type: Spontaneous
  Country: NZ (occurrence: None)
  Receive Date: 20250529
  Receipt Date: 20250529
  Transmission Date: 20250716
  Serious: Yes (Disabling)
  Sender: FDA-CTU
  Company Number: None

PATIENT
  Age: 38 Year
  Sex: Male
  Weight: 86 kg

DRUGS (7)
  1. CELEXA [Suspect]
     Active Substance: CITALOPRAM HYDROBROMIDE
     Indication: Depression
  2. CELEXA [Suspect]
     Active Substance: CITALOPRAM HYDROBROMIDE
     Indication: Anxiety
  3. EFFEXOR [Suspect]
     Active Substance: VENLAFAXINE HYDROCHLORIDE
  4. supplement with magnesium glycinate [Concomitant]
  5. VITAMIN D [Concomitant]
     Active Substance: VITAMIN D NOS
  6. GLYCINE [Concomitant]
     Active Substance: GLYCINE
  7. IODINE [Concomitant]
     Active Substance: IODINE

REACTIONS (22)
  - Withdrawal syndrome [None]
  - Toxic encephalopathy [None]
  - Paranoia [None]
  - Substance-induced psychotic disorder [None]
  - Fatigue [None]
  - Gait disturbance [None]
  - Vertigo [None]
  - Suicidal ideation [None]
  - Electric shock sensation [None]
  - Head discomfort [None]
  - Burning sensation [None]
  - Heart rate increased [None]
  - Depersonalisation/derealisation disorder [None]
  - Tinnitus [None]
  - Abnormal dreams [None]
  - Central nervous system injury [None]
  - Iatrogenic injury [None]
  - Paradoxical drug reaction [None]
  - Tardive akathisia [None]
  - Disability [None]
  - Impaired work ability [None]
  - Impaired quality of life [None]

NARRATIVE: CASE EVENT DATE: 20170515
